FAERS Safety Report 8084699-7 (Version None)
Quarter: 2012Q1

REPORT INFORMATION
  Report Type: 
  Country: None (occurrence: None)
  Receive Date: 20120130
  Receipt Date: 20111013
  Transmission Date: 20120608
  Serious: Yes (Other)
  Sender: FDA-Public Use
  Company Number: PHHY2011US02817

PATIENT
  Sex: Male
  Weight: 47.6 kg

DRUGS (4)
  1. AFINITOR [Suspect]
     Indication: TUBEROUS SCLEROSIS
     Dosage: 7.5 MG, DAILY
     Route: 048
     Dates: start: 20110103, end: 20111006
  2. DEPAKOTE [Concomitant]
     Dosage: 1500 MG, DAILY
  3. ARNIKA [Concomitant]
     Dosage: UNK UKN, DAILY
  4. MIRALAX [Concomitant]
     Dosage: UNK UKN, UNK

REACTIONS (7)
  - INFLAMMATION [None]
  - ACNE [None]
  - ABDOMINAL DISTENSION [None]
  - COUGH [None]
  - PARONYCHIA [None]
  - AGGRESSION [None]
  - PAIN [None]
